FAERS Safety Report 6453871-1 (Version None)
Quarter: 2009Q4

REPORT INFORMATION
  Report Type: 
  Country: None (occurrence: None)
  Receive Date: 20091116
  Receipt Date: 20091102
  Transmission Date: 20100525
  Serious: Yes (Death)
  Sender: FDA-Public Use
  Company Number: B0602289A

PATIENT
  Sex: Female

DRUGS (8)
  1. PACLITAXEL [Suspect]
     Indication: ENDOMETRIAL CANCER
     Dosage: 90 MG/M2 CYCLIC INTRAVENOUS
     Route: 042
  2. CETIRIZINE HYDROCHLORIDE [Suspect]
     Dosage: 10 MG ORAL
     Route: 048
  3. RANITIDINE HYDROCHLORIDE [Suspect]
     Indication: PROPHYLAXIS
     Dosage: 50 MG INTRAVENOUS
     Route: 042
  4. CARBOPLATIN [Suspect]
     Indication: ENDOMETRIAL CANCER
     Dosage: CYCLIC
  5. DEXAMETHASONE [Suspect]
     Dosage: 20 MG
  6. TROPISETRON [Suspect]
     Indication: PROPHYLAXIS
     Dosage: 5 MG INTRAVENOUS
     Route: 042
  7. PROMETHAZINE [Suspect]
     Indication: PROPHYLAXIS
     Dosage: 50 MG INTRAMUSCULAR
     Route: 030
  8. DEXTROSE [Concomitant]

REACTIONS (2)
  - NEPHROPATHY TOXIC [None]
  - NEUTROPENIA [None]
